FAERS Safety Report 9893164 (Version 1)
Quarter: 2014Q1

REPORT INFORMATION
  Report Type: Report from Study
  Country: US (occurrence: US)
  Receive Date: 20140213
  Receipt Date: 20140213
  Transmission Date: 20141002
  Serious: Yes (Other)
  Sender: FDA-Public Use
  Company Number: US-ROCHE-1322904

PATIENT
  Age: 54 Year
  Sex: Male

DRUGS (37)
  1. AVASTIN [Suspect]
     Indication: COLON CANCER
     Route: 065
     Dates: start: 20111010
  2. AVASTIN [Suspect]
     Indication: LYMPHOMA
     Route: 040
     Dates: start: 20111025
  3. AVASTIN [Suspect]
     Indication: METASTASES TO THE MEDIASTINUM
     Route: 040
     Dates: start: 20120409
  4. AVASTIN [Suspect]
     Route: 042
     Dates: start: 20120425
  5. AVASTIN [Suspect]
     Route: 042
     Dates: start: 20130422
  6. AVASTIN [Suspect]
     Route: 042
     Dates: start: 20121022
  7. AVASTIN [Suspect]
     Route: 042
     Dates: start: 20130218
  8. AVASTIN [Suspect]
     Route: 042
     Dates: start: 20130318
  9. AVASTIN [Suspect]
     Route: 042
     Dates: start: 20120730
  10. AVASTIN [Suspect]
     Route: 042
     Dates: start: 20130813
  11. AVASTIN [Suspect]
     Route: 042
     Dates: start: 20120618
  12. AVASTIN [Suspect]
     Route: 042
     Dates: start: 20120521
  13. AVASTIN [Suspect]
     Route: 042
     Dates: start: 20120924
  14. AVASTIN [Suspect]
     Route: 042
     Dates: start: 20130304
  15. AVASTIN [Suspect]
     Route: 042
     Dates: start: 20120702
  16. AVASTIN [Suspect]
     Route: 042
     Dates: start: 20130520
  17. AVASTIN [Suspect]
     Route: 042
     Dates: start: 20130506
  18. AVASTIN [Suspect]
     Route: 042
  19. AVASTIN [Suspect]
     Route: 065
  20. AVASTIN [Suspect]
     Route: 042
  21. AVASTIN [Suspect]
     Route: 042
  22. AVASTIN [Suspect]
     Route: 042
  23. ELOXATIN [Concomitant]
     Route: 042
  24. FLUOROURACIL [Concomitant]
     Route: 040
     Dates: start: 20111025
  25. FLUOROURACIL [Concomitant]
     Route: 040
     Dates: start: 20120425
  26. FLUOROURACIL [Concomitant]
     Route: 040
     Dates: start: 20130118
  27. FLUOROURACIL [Concomitant]
     Route: 040
     Dates: start: 20130422
  28. FLUOROURACIL [Concomitant]
     Dosage: CIV PUMP
     Route: 041
     Dates: start: 20111107
  29. FLUOROURACIL [Concomitant]
     Dosage: CIV PUMP
     Route: 041
     Dates: start: 20120507
  30. FLUOROURACIL [Concomitant]
     Dosage: CIV PUMP
     Route: 041
     Dates: start: 20130108
  31. FLUOROURACIL [Concomitant]
     Dosage: CIV PUMP
     Route: 041
     Dates: start: 20130422
  32. FLUOROURACIL [Concomitant]
     Route: 042
  33. DEXAMETHASONE [Concomitant]
     Route: 042
  34. LEUCOVORIN [Concomitant]
     Route: 040
  35. LEUCOVORIN [Concomitant]
     Route: 042
  36. PALONOSETRON HYDROCHLORIDE [Concomitant]
     Route: 042
  37. DEXAMETHASONE SODIUM PHOSPHATE [Concomitant]
     Route: 042

REACTIONS (9)
  - Metastases to the mediastinum [Not Recovered/Not Resolved]
  - Metastases to lymph nodes [Not Recovered/Not Resolved]
  - Hypocalcaemia [Unknown]
  - Ascites [Unknown]
  - Deficiency anaemia [Unknown]
  - Dysuria [Unknown]
  - Testicular failure [Not Recovered/Not Resolved]
  - Bone pain [Unknown]
  - Laboratory test abnormal [Not Recovered/Not Resolved]
